FAERS Safety Report 4324432-5 (Version None)
Quarter: 2004Q1

REPORT INFORMATION
  Report Type: 
  Country: None (occurrence: None)
  Receive Date: 20040326
  Receipt Date: 20040211
  Transmission Date: 20041129
  Serious: No
  Sender: FDA-Public Use
  Company Number: US-GLAXOSMITHKLINE-A0497794A

PATIENT
  Age: 70 Year
  Sex: Male

DRUGS (3)
  1. ADVAIR DISKUS 100/50 [Suspect]
     Indication: EMPHYSEMA
     Dosage: 1PUFF TWICE PER DAY
     Route: 055
  2. ASPIRIN [Concomitant]
  3. UNKNOWN MEDICATION [Concomitant]
     Route: 065

REACTIONS (4)
  - DIZZINESS [None]
  - NERVOUSNESS [None]
  - PERIPHERAL COLDNESS [None]
  - SENSORY DISTURBANCE [None]
